FAERS Safety Report 6275896-1 (Version None)
Quarter: 2009Q3

REPORT INFORMATION
  Report Type: 
  Country: None (occurrence: None)
  Receive Date: 20090720
  Receipt Date: 20090708
  Transmission Date: 20100115
  Serious: Yes (Death, Hospitalization)
  Sender: FDA-Public Use
  Company Number: 2009-02779

PATIENT

DRUGS (3)
  1. VELCADE [Suspect]
     Indication: NON-SMALL CELL LUNG CANCER STAGE III
  2. CARBOPLATIN [Suspect]
     Indication: NON-SMALL CELL LUNG CANCER STAGE III
  3. TAXOL [Suspect]
     Indication: NON-SMALL CELL LUNG CANCER STAGE III
     Dosage: 50 MG/M2

REACTIONS (4)
  - ACUTE RESPIRATORY DISTRESS SYNDROME [None]
  - PNEUMONITIS [None]
  - PROCEDURAL COMPLICATION [None]
  - RESPIRATORY FAILURE [None]
